FAERS Safety Report 5007374-1 (Version None)
Quarter: 2006Q2

REPORT INFORMATION
  Report Type: 
  Country: None (occurrence: None)
  Receive Date: 20060518
  Receipt Date: 20060518
  Transmission Date: 20061013
  Serious: Yes (Life-Threatening, Hospitalization, Disabling)
  Sender: FDA-Public Use
  Company Number: None

PATIENT
  Age: 64 Year
  Sex: Male
  Weight: 93.6 kg

DRUGS (13)
  1. ATORVASTATIN 80MG [Suspect]
     Indication: HYPERLIPIDAEMIA
     Dosage: 80MG  QHS PO
     Route: 048
     Dates: start: 20060404, end: 20060505
  2. SIMVASTATIN [Suspect]
     Indication: HYPERLIPIDAEMIA
     Dosage: 80MG QHS PO
     Route: 048
     Dates: start: 20050511, end: 20060404
  3. CALCITRIOL [Concomitant]
  4. VITAMIN 'D' CALCIUM ACETATE [Concomitant]
  5. DARBEPOETIN ALFA [Concomitant]
  6. FELODIPINE [Concomitant]
  7. FERROUS SO4 [Concomitant]
  8. FLUDROCORTISONE ACETATE [Concomitant]
  9. FUROSEMIDE [Concomitant]
  10. . [Concomitant]
  11. GEMFIBROZIL [Concomitant]
  12. NOVOLIN 70/30 [Concomitant]
  13. INSULIN NPH HUMAN 100 UNIT/ML NOVOLIN N [Concomitant]

REACTIONS (2)
  - RENAL FAILURE ACUTE [None]
  - RHABDOMYOLYSIS [None]
